FAERS Safety Report 14426207 (Version 10)
Quarter: 2019Q1

REPORT INFORMATION
  Report Type: Spontaneous
  Country: US (occurrence: US)
  Receive Date: 20180123
  Receipt Date: 20190326
  Transmission Date: 20190417
  Serious: Yes (Hospitalization, Other)
  Sender: FDA-Public Use
  Company Number: US-ACTELION-A-NJ2018-166221

PATIENT
  Age: 64 Year
  Sex: Male
  Weight: 79.82 kg

DRUGS (4)
  1. ELIQUIS [Concomitant]
     Active Substance: APIXABAN
  2. VELETRI [Suspect]
     Active Substance: EPOPROSTENOL
     Indication: PULMONARY ARTERIAL HYPERTENSION
     Dosage: 20 NG/KG, PER MIN
     Route: 042
  3. SILDENAFIL CITRATE. [Concomitant]
     Active Substance: SILDENAFIL CITRATE
  4. VELETRI [Suspect]
     Active Substance: EPOPROSTENOL
     Dosage: 19 NG/KG, PER MIN
     Route: 042

REACTIONS (27)
  - Eating disorder [Unknown]
  - Dyspnoea exertional [Unknown]
  - Oesophagocardiomyotomy [Unknown]
  - Pain in jaw [Not Recovered/Not Resolved]
  - Diabetes mellitus [Unknown]
  - Device breakage [Unknown]
  - Decreased appetite [Unknown]
  - Renal cancer [Unknown]
  - Haematuria [Unknown]
  - Transfusion [Unknown]
  - Blood iron decreased [Unknown]
  - Catheter management [Unknown]
  - Haemorrhage [Unknown]
  - Viral infection [Unknown]
  - Red blood cell count decreased [Unknown]
  - Haematocrit decreased [Unknown]
  - Dyspnoea [Unknown]
  - Blood pressure increased [Unknown]
  - Device leakage [Unknown]
  - Oesophageal achalasia [Unknown]
  - Cardiac dysfunction [Unknown]
  - Myalgia [Not Recovered/Not Resolved]
  - Cardiac disorder [Unknown]
  - Atrial fibrillation [Unknown]
  - Weight decreased [Unknown]
  - Vertigo [Unknown]
  - Catheter site rash [Unknown]

NARRATIVE: CASE EVENT DATE: 201801
